FAERS Safety Report 4827230-9 (Version None)
Quarter: 2005Q4

REPORT INFORMATION
  Report Type: 
  Country: None (occurrence: None)
  Receive Date: 20051014
  Receipt Date: 20050617
  Transmission Date: 20060501
  Serious: No
  Sender: FDA-Public Use
  Company Number: 2005SP001470

PATIENT
  Age: 56 Year
  Sex: Female
  Weight: 118.8424 kg

DRUGS (4)
  1. LUNESTA [Suspect]
     Indication: INSOMNIA
     Dosage: 3 MG; HS; ORAL
     Route: 048
     Dates: start: 20050616, end: 20050616
  2. AVANDIA [Concomitant]
  3. NEURONTIN [Concomitant]
  4. METFORMIN [Concomitant]

REACTIONS (5)
  - BALANCE DISORDER [None]
  - DRUG INEFFECTIVE [None]
  - FEELING JITTERY [None]
  - HALLUCINATION [None]
  - INITIAL INSOMNIA [None]
